FAERS Safety Report 9538760 (Version 1)
Quarter: 2013Q3

REPORT INFORMATION
  Report Type: Spontaneous
  Country: US (occurrence: None)
  Receive Date: 20130917
  Receipt Date: 20130917
  Transmission Date: 20140515
  Serious: Yes (Hospitalization, Other)
  Sender: FDA-Public Use
  Company Number: 2012-003981

PATIENT
  Age: 68 Year
  Sex: Female

DRUGS (1)
  1. ACTONEL [Suspect]
     Route: 048

REACTIONS (4)
  - Femur fracture [None]
  - Fall [None]
  - Periprosthetic fracture [None]
  - Femoral neck fracture [None]
